FAERS Safety Report 18394968 (Version 1)
Quarter: 2020Q4

REPORT INFORMATION
  Report Type: Spontaneous
  Country: US (occurrence: US)
  Receive Date: 20201016
  Receipt Date: 20201016
  Transmission Date: 20210114
  Serious: Yes (Death, Disabling, Other)
  Sender: FDA-Public Use
  Company Number: US-PURDUE-USA-2020-0169245

PATIENT
  Age: 60 Year
  Sex: Male

DRUGS (1)
  1. OXYCONTIN [Suspect]
     Active Substance: OXYCODONE HYDROCHLORIDE
     Indication: PRODUCT USED FOR UNKNOWN INDICATION
     Dosage: UNK
     Route: 048

REACTIONS (8)
  - Drug abuse [Unknown]
  - Hypertensive heart disease [Unknown]
  - Overdose [Unknown]
  - Arteriosclerosis [Unknown]
  - Death [Fatal]
  - Drug dependence [Unknown]
  - Disability [Unknown]
  - Seizure [Unknown]

NARRATIVE: CASE EVENT DATE: 20150423
